FAERS Safety Report 10565168 (Version 1)
Quarter: 2014Q4

REPORT INFORMATION
  Report Type: Other
  Country: GB (occurrence: GB)
  Receive Date: 20141105
  Receipt Date: 20141105
  Transmission Date: 20150529
  Serious: Yes (Life-Threatening, Other)
  Sender: FDA-Public Use
  Company Number: GB-LUPIN PHARMACEUTICALS INC.-E2B_00002666

PATIENT
  Age: 87 Year
  Sex: Male
  Weight: 60.5 kg

DRUGS (7)
  1. DIAZEPAM. [Concomitant]
     Active Substance: DIAZEPAM
     Indication: ANXIETY
     Route: 048
     Dates: start: 20141007
  2. QUETIAPINE [Suspect]
     Active Substance: QUETIAPINE
     Indication: ANXIETY
     Dosage: SEVERAL DOSE CHANGES IN THIS PERIOD
     Route: 048
     Dates: start: 201207, end: 20140925
  3. PARACETAMOL [Concomitant]
     Active Substance: ACETAMINOPHEN
     Indication: PAIN
     Route: 048
     Dates: end: 20141004
  4. MEMANTINE [Concomitant]
     Active Substance: MEMANTINE
     Indication: DEMENTIA
     Route: 048
  5. DALTEPARIN [Concomitant]
     Active Substance: DALTEPARIN
     Indication: THROMBOSIS PROPHYLAXIS
     Route: 058
     Dates: start: 20140921
  6. LACTULOSE. [Concomitant]
     Active Substance: LACTULOSE
     Indication: CONSTIPATION
     Route: 048
  7. QUETIAPINE [Suspect]
     Active Substance: QUETIAPINE
     Indication: ANXIETY
     Dosage: 12.5MG IN THE MORNING, 25MG AT NIGHT.
     Route: 048
     Dates: start: 20140926, end: 20141007

REACTIONS (7)
  - Hyperhidrosis [Recovered/Resolved]
  - Hyperpyrexia [Recovered/Resolved]
  - Dehydration [Recovered/Resolved]
  - Tremor [Recovered/Resolved]
  - Confusional state [Recovered/Resolved]
  - Acidosis [Recovered/Resolved]
  - Hypophagia [Recovered/Resolved]

NARRATIVE: CASE EVENT DATE: 20141007
